FAERS Safety Report 4835868-8 (Version None)
Quarter: 2005Q4

REPORT INFORMATION
  Report Type: 
  Country: None (occurrence: None)
  Receive Date: 20051123
  Receipt Date: 20051114
  Transmission Date: 20060501
  Serious: Yes (Hospitalization)
  Sender: FDA-Public Use
  Company Number: AT-AVENTIS-200514334EU

PATIENT
  Age: 78 Year
  Sex: Female

DRUGS (13)
  1. LOVENOX [Suspect]
     Dates: start: 20051107, end: 20051116
  2. LOVENOX [Suspect]
     Dates: start: 20051107, end: 20051116
  3. LOVENOX [Suspect]
     Dates: start: 20051107, end: 20051116
  4. AMLODIPINE [Concomitant]
  5. ENALAPRIL MALEATE [Concomitant]
  6. PAROXETINE HYDROCHLORIDE [Concomitant]
  7. NEBIVOLOL HYDROCHLORIDE [Concomitant]
  8. ACETYLSALICYLIC ACID [Concomitant]
  9. PENTOXIFYLLINE [Concomitant]
  10. SIMVASTATIN [Concomitant]
  11. ACETYLCYSTEINE [Concomitant]
  12. CLOPIDOGREL BISULFATE [Concomitant]
  13. GLUCOSE W/ELECTROLYTES [Concomitant]

REACTIONS (1)
  - VASCULAR PSEUDOANEURYSM [None]
